FAERS Safety Report 26078657 (Version 1)
Quarter: 2025Q4

REPORT INFORMATION
  Report Type: Spontaneous
  Country: US (occurrence: US)
  Receive Date: 20251123
  Receipt Date: 20251123
  Transmission Date: 20260118
  Serious: No
  Sender: GALPHARM INTERNATIONAL
  Company Number: US-PERRIGO-24US010721

PATIENT
  Sex: Female
  Weight: 98.413 kg

DRUGS (1)
  1. OPILL [Suspect]
     Active Substance: NORGESTREL
     Indication: Contraception
     Dosage: UNKNOWN, UNKNOWN
     Route: 048
     Dates: start: 202405

REACTIONS (8)
  - Mood swings [Recovered/Resolved]
  - Anger [Unknown]
  - Weight increased [Not Recovered/Not Resolved]
  - Acne [Unknown]
  - Increased appetite [Unknown]
  - Menstruation delayed [Recovered/Resolved]
  - Heavy menstrual bleeding [Recovered/Resolved]
  - Amenorrhoea [Not Recovered/Not Resolved]

NARRATIVE: CASE EVENT DATE: 20240501
